FAERS Safety Report 24113793 (Version 6)
Quarter: 2024Q3

REPORT INFORMATION
  Report Type: Report from Study
  Country: US (occurrence: US)
  Receive Date: 20240720
  Receipt Date: 20240919
  Transmission Date: 20241016
  Serious: Yes (Other)
  Sender: MERCK
  Company Number: US-009507513-2406USA009155

PATIENT
  Sex: Female
  Weight: 90.703 kg

DRUGS (22)
  1. SOTATERCEPT [Suspect]
     Active Substance: SOTATERCEPT
     Indication: Pulmonary arterial hypertension
     Dosage: 1.3 MILLILITER, Q3W; STRENGTH: 90 MG
     Route: 058
     Dates: start: 20240605
  2. SOTATERCEPT [Suspect]
     Active Substance: SOTATERCEPT
     Dosage: 1.4 MILLILITER, Q3W; STRENGTH: 90 MG
     Route: 058
     Dates: start: 20240722, end: 20240722
  3. REMODULIN [Suspect]
     Active Substance: TREPROSTINIL
     Indication: Pulmonary arterial hypertension
     Dosage: 0.075 MICROGRAM PER KILOGRAM
     Route: 041
     Dates: start: 20181005
  4. REMODULIN [Suspect]
     Active Substance: TREPROSTINIL
     Dosage: 0.075 MICROGRAM PER KILOGRAM
     Route: 041
     Dates: start: 20240722, end: 2024
  5. REMODULIN [Suspect]
     Active Substance: TREPROSTINIL
     Dosage: DOSE DECREASED (AT RATE OF 36), CONTINUING
     Route: 041
     Dates: start: 2024
  6. REMODULIN [Suspect]
     Active Substance: TREPROSTINIL
     Dosage: UNK (DOSE DECREASED), CONTINUING
     Route: 041
     Dates: start: 2024, end: 2024
  7. MIDODRINE HYDROCHLORIDE [Concomitant]
     Active Substance: MIDODRINE HYDROCHLORIDE
     Dosage: UNK
  8. TRI-LO-SPRINTEC [Concomitant]
     Active Substance: ETHINYL ESTRADIOL\NORGESTIMATE
     Dosage: UNK
  9. TYLENOL [Concomitant]
     Active Substance: ACETAMINOPHEN
     Dosage: UNK
  10. BUMETANIDE [Concomitant]
     Active Substance: BUMETANIDE
     Dosage: UNK
  11. LORAZEPAM [Concomitant]
     Active Substance: LORAZEPAM
     Dosage: UNK
  12. TADALAFIL [Concomitant]
     Active Substance: TADALAFIL
     Dosage: UNK
  13. ELIQUIS [Concomitant]
     Active Substance: APIXABAN
     Dosage: UNK
  14. LEVALBUTEROL TARTRATE [Concomitant]
     Active Substance: LEVALBUTEROL TARTRATE
     Dosage: UNK
  15. OXYGEN [Concomitant]
     Active Substance: OXYGEN
     Dosage: UNK
  16. AMIODARONE HYDROCHLORIDE [Concomitant]
     Active Substance: AMIODARONE HYDROCHLORIDE
     Dosage: UNK
  17. DIGOXIN [Concomitant]
     Active Substance: DIGOXIN
     Dosage: UNK
  18. SYMBICORT [Concomitant]
     Active Substance: BUDESONIDE\FORMOTEROL FUMARATE DIHYDRATE
     Dosage: UNK
  19. OXYCODONE AND ACETAMINOPHEN [Concomitant]
     Active Substance: ACETAMINOPHEN\OXYCODONE HYDROCHLORIDE
     Dosage: UNK
  20. LYRICA [Concomitant]
     Active Substance: PREGABALIN
     Dosage: UNK
  21. FERROUS SULFATE [Concomitant]
     Active Substance: FERROUS SULFATE
     Dosage: UNK
  22. ZOFRAN [Concomitant]
     Active Substance: ONDANSETRON HYDROCHLORIDE
     Dosage: UNK

REACTIONS (9)
  - Postmenopausal haemorrhage [Unknown]
  - Abdominal pain upper [Unknown]
  - Headache [Not Recovered/Not Resolved]
  - Eye swelling [Unknown]
  - Erythema [Unknown]
  - Musculoskeletal chest pain [Not Recovered/Not Resolved]
  - Catheter site pain [Not Recovered/Not Resolved]
  - Weight decreased [Unknown]
  - Hot flush [Unknown]

NARRATIVE: CASE EVENT DATE: 20240101
